FAERS Safety Report 10260439 (Version 4)
Quarter: 2015Q2

REPORT INFORMATION
  Report Type: Spontaneous
  Country: US (occurrence: US)
  Receive Date: 20140625
  Receipt Date: 20150616
  Transmission Date: 20150821
  Serious: Yes (Hospitalization, Congenital Anomaly, Other)
  Sender: FDA-Public Use
  Company Number: US-ELI_LILLY_AND_COMPANY-US201406008511

PATIENT
  Age: 0 Day

DRUGS (2)
  1. PROZAC [Suspect]
     Active Substance: FLUOXETINE HYDROCHLORIDE
     Indication: PRODUCT USED FOR UNKNOWN INDICATION
     Dosage: 1 DF, UNKNOWN
     Route: 064
     Dates: end: 20010430
  2. PRENAT                             /00023601/ [Concomitant]
     Route: 064

REACTIONS (4)
  - Anomaly of orbit, congenital [Unknown]
  - Craniosynostosis [Unknown]
  - Foetal exposure during pregnancy [Recovered/Resolved]
  - Synostosis [Unknown]

NARRATIVE: CASE EVENT DATE: 20011108
